FAERS Safety Report 22275923 (Version 1)
Quarter: 2023Q2

REPORT INFORMATION
  Report Type: Spontaneous
  Country: US (occurrence: None)
  Receive Date: 20230501
  Receipt Date: 20230501
  Transmission Date: 20230721
  Serious: Yes (Hospitalization)
  Sender: FDA-Public Use
  Company Number: None

PATIENT
  Age: 55 Year
  Sex: Female
  Weight: 93.4 kg

DRUGS (1)
  1. FASLODEX [Suspect]
     Active Substance: FULVESTRANT
     Indication: Breast cancer
     Dates: start: 20230418, end: 20230418

REACTIONS (7)
  - Throat irritation [None]
  - Oropharyngeal discomfort [None]
  - Anxiety [None]
  - Dizziness [None]
  - Hypertension [None]
  - Tachycardia [None]
  - Heart rate increased [None]

NARRATIVE: CASE EVENT DATE: 20230418
